FAERS Safety Report 18172761 (Version 1)
Quarter: 2020Q3

REPORT INFORMATION
  Report Type: Spontaneous
  Country: JP (occurrence: JP)
  Receive Date: 20200819
  Receipt Date: 20200819
  Transmission Date: 20201103
  Serious: Yes (Life-Threatening, Other)
  Sender: FDA-Public Use
  Company Number: JP-LUNDBECK-DKLU3017639

PATIENT
  Age: 9 Year
  Sex: Female
  Weight: 37 kg

DRUGS (34)
  1. TEGRETOL [Suspect]
     Active Substance: CARBAMAZEPINE
     Route: 065
  2. CARBAMAZEPINE. [Suspect]
     Active Substance: CARBAMAZEPINE
     Indication: PRODUCT USED FOR UNKNOWN INDICATION
     Route: 065
  3. VEEN D [Concomitant]
     Active Substance: CALCIUM CHLORIDE\DEXTROSE\POTASSIUM CHLORIDE\SODIUM ACETATE\SODIUM CHLORIDE
     Indication: PRODUCT USED FOR UNKNOWN INDICATION
     Route: 042
     Dates: start: 20160608, end: 20160611
  4. VENOGLOBULIN [Concomitant]
     Active Substance: HUMAN IMMUNOGLOBULIN G
     Route: 042
     Dates: start: 20160608, end: 20160612
  5. HEPAFLUSH [Concomitant]
     Active Substance: HEPARIN SODIUM
     Indication: THROMBOSIS
     Route: 042
     Dates: start: 20160525, end: 20160618
  6. INTRALIPOS [Concomitant]
     Active Substance: SOYBEAN OIL
     Indication: NUTRITIONAL SUPPLEMENTATION
     Route: 042
     Dates: start: 20160607, end: 20160607
  7. VEEN D [Concomitant]
     Active Substance: CALCIUM CHLORIDE\DEXTROSE\POTASSIUM CHLORIDE\SODIUM ACETATE\SODIUM CHLORIDE
     Dosage: QID TO QD
     Route: 042
     Dates: start: 20160525, end: 20160606
  8. FOSPHENYTOIN SODIUM. [Concomitant]
     Active Substance: FOSPHENYTOIN SODIUM
     Indication: SEIZURE PROPHYLAXIS
     Route: 065
     Dates: start: 20160601, end: 20160607
  9. TRICLORYL [Concomitant]
     Active Substance: TRICLOFOS SODIUM
     Indication: INSOMNIA
     Dosage: QD TO BID
     Route: 065
     Dates: start: 20160527, end: 20160604
  10. METHYLPREDNISOLONE. [Concomitant]
     Active Substance: METHYLPREDNISOLONE
     Route: 042
     Dates: start: 20160526, end: 20160530
  11. WYPAX [Concomitant]
     Active Substance: LORAZEPAM
     Indication: INSOMNIA
     Route: 065
     Dates: start: 20160526, end: 20160614
  12. VENOGLOBULIN [Concomitant]
     Active Substance: HUMAN IMMUNOGLOBULIN G
     Indication: LIMBIC ENCEPHALITIS
     Route: 042
     Dates: start: 20160531, end: 20160601
  13. HEPARIN [Concomitant]
     Active Substance: HEPARIN SODIUM
     Indication: PROPHYLAXIS
     Route: 042
     Dates: start: 20160526, end: 20160530
  14. LORAZEPAM. [Concomitant]
     Active Substance: LORAZEPAM
     Indication: PRODUCT USED FOR UNKNOWN INDICATION
     Route: 065
  15. OTSUKA MV [Concomitant]
     Indication: NUTRITIONAL SUPPLEMENTATION
     Route: 042
     Dates: start: 20160606, end: 20190609
  16. PN?TWIN NO.2 [Concomitant]
     Indication: NUTRITIONAL SUPPLEMENTATION
     Route: 042
     Dates: start: 20160607, end: 20160607
  17. MYSTAN [Suspect]
     Active Substance: CLOBAZAM
     Route: 065
     Dates: start: 20160604, end: 20160621
  18. METHYLPREDNISOLONE. [Concomitant]
     Active Substance: METHYLPREDNISOLONE
     Indication: LIMBIC ENCEPHALITIS
     Route: 042
     Dates: start: 20160603, end: 20160607
  19. ROZEREM [Concomitant]
     Active Substance: RAMELTEON
     Indication: INSOMNIA
     Route: 065
     Dates: start: 20160529, end: 20160614
  20. PN TWIN [Concomitant]
     Indication: NUTRITIONAL SUPPLEMENTATION
     Route: 042
     Dates: start: 20160506, end: 20160607
  21. TEGRETOL [Suspect]
     Active Substance: CARBAMAZEPINE
     Indication: SEIZURE PROPHYLAXIS
     Route: 065
     Dates: start: 20160601, end: 20160603
  22. SOYBEAN OIL [Concomitant]
     Active Substance: SOYBEAN OIL
     Indication: PRODUCT USED FOR UNKNOWN INDICATION
     Route: 065
  23. METHYLPREDNISOLONE. [Concomitant]
     Active Substance: METHYLPREDNISOLONE
     Route: 042
     Dates: start: 20160618, end: 20160620
  24. HEPARIN [Concomitant]
     Active Substance: HEPARIN SODIUM
     Route: 042
     Dates: start: 20160603, end: 20160606
  25. INTRALIPOS [Concomitant]
     Active Substance: SOYBEAN OIL
     Route: 042
     Dates: start: 20160606, end: 20160606
  26. VOLIX [Concomitant]
     Indication: NUTRITIONAL SUPPLEMENTATION
     Route: 042
     Dates: start: 20160606, end: 20160609
  27. OMEPRAZOLE. [Concomitant]
     Active Substance: OMEPRAZOLE
     Indication: PROPHYLAXIS
     Route: 042
     Dates: start: 20160526, end: 20160611
  28. MYSTAN [Suspect]
     Active Substance: CLOBAZAM
     Indication: SEIZURE PROPHYLAXIS
     Route: 065
     Dates: start: 20160602, end: 20160603
  29. CEFOTAXIME [Suspect]
     Active Substance: CEFOTAXIME SODIUM
     Indication: INFECTION
     Route: 042
     Dates: start: 20160610, end: 20160617
  30. FOSTOIN [Concomitant]
     Active Substance: FOSPHENYTOIN SODIUM
     Route: 042
     Dates: start: 20160603, end: 20160603
  31. FOSTOIN [Concomitant]
     Active Substance: FOSPHENYTOIN SODIUM
     Route: 042
     Dates: start: 20160604, end: 20160606
  32. SOLACET F [Concomitant]
     Active Substance: CALCIUM CHLORIDE\POTASSIUM CHLORIDE\SODIUM ACETATE\SODIUM CHLORIDE
     Indication: PRODUCT USED FOR UNKNOWN INDICATION
     Route: 042
     Dates: start: 20160525, end: 20160526
  33. SOLACET F [Concomitant]
     Active Substance: CALCIUM CHLORIDE\POTASSIUM CHLORIDE\SODIUM ACETATE\SODIUM CHLORIDE
     Route: 042
     Dates: start: 20160607, end: 20160607
  34. FOSTOIN [Concomitant]
     Active Substance: FOSPHENYTOIN SODIUM
     Indication: PROPHYLAXIS
     Route: 042
     Dates: start: 20160602, end: 20160602

REACTIONS (25)
  - Condition aggravated [Unknown]
  - Aggression [Unknown]
  - Device related infection [Unknown]
  - Endocarditis [Unknown]
  - Hypertension [Unknown]
  - Pyrexia [Unknown]
  - Constipation [Unknown]
  - Disturbance in attention [Unknown]
  - Limb discomfort [Unknown]
  - Papule [Unknown]
  - Pruritus [Unknown]
  - Apnoea [Unknown]
  - Focal dyscognitive seizures [Unknown]
  - Urinary tract infection [Unknown]
  - Drug reaction with eosinophilia and systemic symptoms [Unknown]
  - Limbic encephalitis [Unknown]
  - Staphylococcal infection [Unknown]
  - Proteus test positive [Unknown]
  - Pyuria [Unknown]
  - Blister [Unknown]
  - Stevens-Johnson syndrome [Recovered/Resolved]
  - Screaming [Unknown]
  - Bacterial infection [Unknown]
  - Dry skin [Unknown]
  - Escherichia test positive [Unknown]

NARRATIVE: CASE EVENT DATE: 20160602
